FAERS Safety Report 7140948-0 (Version None)
Quarter: 2010Q4

REPORT INFORMATION
  Report Type: 
  Country: None (occurrence: None)
  Receive Date: 20101201
  Receipt Date: 20101201
  Transmission Date: 20110411
  Serious: No
  Sender: FDA-Public Use
  Company Number: None

PATIENT
  Age: 52 Year
  Sex: Female
  Weight: 57.1532 kg

DRUGS (3)
  1. ALPRAZOLAM [Suspect]
     Indication: ANXIETY DISORDER
     Dosage: 1MG 3 TIMES ADAY
     Dates: start: 20030417, end: 20101130
  2. ALPRAZOLAM [Suspect]
     Indication: PANIC DISORDER
     Dosage: 1MG 3 TIMES ADAY
     Dates: start: 20030417, end: 20101130
  3. ALPRAZOLAM [Suspect]

REACTIONS (9)
  - ANXIETY [None]
  - FATIGUE [None]
  - HEADACHE [None]
  - INSOMNIA [None]
  - NERVOUSNESS [None]
  - PANIC ATTACK [None]
  - PRODUCT SUBSTITUTION ISSUE [None]
  - PRODUCT TASTE ABNORMAL [None]
  - TREMOR [None]
